FAERS Safety Report 17567506 (Version 1)
Quarter: 2020Q1

REPORT INFORMATION
  Report Type: Spontaneous
  Country: US (occurrence: US)
  Receive Date: 20200320
  Receipt Date: 20200320
  Transmission Date: 20200409
  Serious: Yes (Hospitalization)
  Sender: FDA-Public Use
  Company Number: US-VERTEX PHARMACEUTICALS-2020-004946

PATIENT
  Age: 51 Year
  Sex: Male

DRUGS (1)
  1. TRIKAFTA [Suspect]
     Active Substance: ELEXACAFTOR\IVACAFTOR\TEZACAFTOR
     Indication: CYSTIC FIBROSIS
     Dosage: 100MG ELEXACAFTOR/50MG TEZACAFTOR/75MG IVACAFTOR AM; 150MG IVACAFTOR PM
     Route: 048
     Dates: start: 201912

REACTIONS (2)
  - Joint stiffness [Not Recovered/Not Resolved]
  - Eye operation [Unknown]

NARRATIVE: CASE EVENT DATE: 20191221
